FAERS Safety Report 6346194-2 (Version None)
Quarter: 2009Q3

REPORT INFORMATION
  Report Type: 
  Country: None (occurrence: None)
  Receive Date: 20090821
  Receipt Date: 20090702
  Transmission Date: 20100115
  Serious: No
  Sender: FDA-Public Use
  Company Number: 8047357

PATIENT
  Age: 35 Year
  Sex: Female

DRUGS (1)
  1. CIMZIA [Suspect]
     Indication: CROHN'S DISEASE
     Dosage: 400 MG SC
     Route: 058
     Dates: start: 20081002, end: 20090101

REACTIONS (11)
  - CHILLS [None]
  - COUGH [None]
  - DRY THROAT [None]
  - DYSPHONIA [None]
  - INJECTION SITE DISCHARGE [None]
  - INJECTION SITE PAIN [None]
  - MALAISE [None]
  - MULTIPLE ALLERGIES [None]
  - NASOPHARYNGITIS [None]
  - PYREXIA [None]
  - VIRAL INFECTION [None]
